FAERS Safety Report 8015398-5 (Version None)
Quarter: 2011Q4

REPORT INFORMATION
  Report Type: 
  Country: None (occurrence: None)
  Receive Date: 20111230
  Receipt Date: 20111222
  Transmission Date: 20120403
  Serious: Yes (Hospitalization)
  Sender: FDA-Public Use
  Company Number: US-ASTELLAS-2011US008098

PATIENT
  Age: 78 Year
  Sex: Male
  Weight: 183 kg

DRUGS (4)
  1. VIBATIV [Suspect]
     Indication: ERYSIPELAS
     Dosage: 1800 MG, TOTAL DOSE
     Route: 042
     Dates: start: 20111121, end: 20111121
  2. PLATELET AGGREGATION INHIBITORS [Concomitant]
     Indication: PRODUCT USED FOR UNKNOWN INDICATION
     Dosage: UNK
     Route: 065
  3. VIBATIV [Suspect]
     Dosage: 1000 MG, TOTAL DOSE
     Route: 042
     Dates: start: 20111122, end: 20111122
  4. VIBATIV [Suspect]
     Dosage: 1800 MG, TOTAL DOSE
     Route: 042
     Dates: start: 20111123, end: 20111123

REACTIONS (6)
  - EXTRAVASATION [None]
  - BLOOD GLUCOSE INCREASED [None]
  - VOMITING [None]
  - CHILLS [None]
  - TREMOR [None]
  - NAUSEA [None]
